FAERS Safety Report 10846647 (Version 1)
Quarter: 2015Q1

REPORT INFORMATION
  Report Type: Spontaneous
  Country: SE (occurrence: SE)
  Receive Date: 20150220
  Receipt Date: 20150220
  Transmission Date: 20150721
  Serious: Yes (Other)
  Sender: FDA-Public Use
  Company Number: SE-GLAXOSMITHKLINE-SE2015GSK022621

PATIENT
  Sex: Female

DRUGS (4)
  1. HYDROXYCHLOROQUINE [Concomitant]
     Active Substance: HYDROXYCHLOROQUINE
     Indication: POLYARTHRITIS
     Dosage: 200 MG, UNK
  2. BELIMUMAB [Suspect]
     Active Substance: BELIMUMAB
  3. MYCOPHENOLATE MOFETIL. [Suspect]
     Active Substance: MYCOPHENOLATE MOFETIL
  4. AZATHIOPRINE. [Suspect]
     Active Substance: AZATHIOPRINE

REACTIONS (4)
  - Transaminases increased [Unknown]
  - Nausea [Unknown]
  - Headache [Unknown]
  - Lupus nephritis [Unknown]
